FAERS Safety Report 7731048-7 (Version None)
Quarter: 2011Q3

REPORT INFORMATION
  Report Type: 
  Country: None (occurrence: None)
  Receive Date: 20110906
  Receipt Date: 20110906
  Transmission Date: 20111222
  Serious: Yes (Other)
  Sender: FDA-Public Use
  Company Number: None

PATIENT
  Age: 44 Year
  Sex: Female
  Weight: 48.08 kg

DRUGS (1)
  1. MIRENA [Suspect]
     Dates: start: 20100601, end: 20110401

REACTIONS (3)
  - COMPLICATION OF DEVICE REMOVAL [None]
  - METRORRHAGIA [None]
  - DEVICE DISLOCATION [None]
